FAERS Safety Report 7419068-3 (Version None)
Quarter: 2011Q2

REPORT INFORMATION
  Report Type: 
  Country: None (occurrence: None)
  Receive Date: 20110415
  Receipt Date: 20110411
  Transmission Date: 20111010
  Serious: Yes (Death, Hospitalization)
  Sender: FDA-Public Use
  Company Number: PHHY2011US30686

PATIENT
  Sex: Female

DRUGS (7)
  1. OMEPRAZOLE [Concomitant]
     Dosage: 40 MG,
     Route: 048
  2. AMITRIPTYLINE [Concomitant]
     Dosage: 50 MG,
     Route: 048
  3. GLEEVEC [Suspect]
     Dosage: 400 MG, QD
     Route: 048
  4. AMBIEN [Concomitant]
     Dosage: 5 MG,
     Route: 048
  5. ZOFRAN [Concomitant]
     Dosage: 8 MG,
     Route: 048
  6. FISH OIL [Concomitant]
     Route: 048
  7. PREDNISONE [Concomitant]
     Dosage: 5 MG,
     Route: 048

REACTIONS (1)
  - MYOCARDIAL INFARCTION [None]
